FAERS Safety Report 18196587 (Version 1)
Quarter: 2020Q3

REPORT INFORMATION
  Report Type: Spontaneous
  Country: JP (occurrence: JP)
  Receive Date: 20200825
  Receipt Date: 20200825
  Transmission Date: 20201103
  Serious: Yes (Other)
  Sender: FDA-Public Use
  Company Number: NVSJ2020JP006439

PATIENT
  Age: 77 Year
  Sex: Male
  Weight: 54 kg

DRUGS (2)
  1. BEOVU [Suspect]
     Active Substance: BROLUCIZUMAB-DBLL
     Indication: AGE-RELATED MACULAR DEGENERATION
     Dosage: UNK
     Route: 031
     Dates: start: 20200608, end: 20200608
  2. EYLEA [Suspect]
     Active Substance: AFLIBERCEPT
     Indication: AGE-RELATED MACULAR DEGENERATION
     Dosage: 25 TIMES
     Route: 047
     Dates: start: 20150806

REACTIONS (4)
  - Retinal vasculitis [Not Recovered/Not Resolved]
  - Retinal vascular occlusion [Not Recovered/Not Resolved]
  - Visual impairment [Recovering/Resolving]
  - Uveitis [Recovered/Resolved]

NARRATIVE: CASE EVENT DATE: 20200701
